FAERS Safety Report 5698961-6 (Version None)
Quarter: 2008Q2

REPORT INFORMATION
  Report Type: 
  Country: None (occurrence: None)
  Receive Date: 20080408
  Receipt Date: 20060830
  Transmission Date: 20081010
  Serious: Yes (Hospitalization)
  Sender: FDA-Public Use
  Company Number: US-BAYER-US-2006-025287

PATIENT
  Age: 30 Year
  Sex: Male

DRUGS (1)
  1. ULTRAVIST 300 [Suspect]
     Dosage: UNIT DOSE: 100 ML
     Route: 042
     Dates: start: 20060825, end: 20060825

REACTIONS (3)
  - DYSPNOEA [None]
  - THROAT TIGHTNESS [None]
  - URTICARIA [None]
